FAERS Safety Report 7190209-9 (Version None)
Quarter: 2010Q4

REPORT INFORMATION
  Report Type: 
  Country: None (occurrence: None)
  Receive Date: 20101223
  Receipt Date: 20101216
  Transmission Date: 20110411
  Serious: Yes (Hospitalization)
  Sender: FDA-Public Use
  Company Number: US-US-EMD SERONO, INC.-7029565

PATIENT
  Sex: Male
  Weight: 111 kg

DRUGS (11)
  1. REBIF [Suspect]
     Indication: MULTIPLE SCLEROSIS
     Route: 058
     Dates: start: 20101122, end: 20100101
  2. REBIF [Suspect]
     Route: 058
     Dates: start: 20100101
  3. INSULIN [Concomitant]
     Indication: TYPE 1 DIABETES MELLITUS
     Dates: start: 20100601
  4. METFORMIN [Concomitant]
     Indication: DIABETES MELLITUS
     Dates: start: 20100601
  5. GLYPIZIDE [Concomitant]
     Indication: DIABETES MELLITUS
     Dates: start: 20100601
  6. UNSPECIFIED MEDICATION [Concomitant]
     Indication: CARDIAC FAILURE CONGESTIVE
  7. UNSPECIFIED MEDICATION [Concomitant]
     Indication: HYPERTENSION
  8. UNSPECIFIED MEDICATION [Concomitant]
  9. UNSPECIFIED MEDICATION [Concomitant]
     Indication: BACK PAIN
  10. UNSPECIFIED MEDICATION [Concomitant]
     Indication: GAIT DISTURBANCE
  11. FLU SHOT [Concomitant]
     Dates: start: 20101203, end: 20101203

REACTIONS (9)
  - BACK PAIN [None]
  - BLOOD GLUCOSE INCREASED [None]
  - GAIT DISTURBANCE [None]
  - HEADACHE [None]
  - INFLUENZA [None]
  - OEDEMA PERIPHERAL [None]
  - PAIN [None]
  - PNEUMONIA [None]
  - RENAL IMPAIRMENT [None]
